FAERS Safety Report 24274671 (Version 3)
Quarter: 2024Q4

REPORT INFORMATION
  Report Type: Spontaneous
  Country: US (occurrence: US)
  Receive Date: 20240902
  Receipt Date: 20241129
  Transmission Date: 20250115
  Serious: No
  Sender: PFIZER
  Company Number: US-PFIZER INC-202400242414

PATIENT
  Age: 8 Year
  Sex: Female
  Weight: 40.82 kg

DRUGS (2)
  1. GENOTROPIN [Suspect]
     Active Substance: SOMATROPIN
     Indication: Turner^s syndrome
     Dosage: 1.6 MG, ONE TIME A DAY, 6 DAYS A WEEK
     Route: 058
     Dates: start: 202309
  2. CONCERTA [Concomitant]
     Active Substance: METHYLPHENIDATE HYDROCHLORIDE
     Indication: Attention deficit hyperactivity disorder
     Dosage: 10 MG, 1X/DAY

REACTIONS (3)
  - Wrong technique in device usage process [Unknown]
  - Drug dose omission by device [Unknown]
  - Device information output issue [Unknown]

NARRATIVE: CASE EVENT DATE: 20240821
